FAERS Safety Report 8778933 (Version 3)
Quarter: 2012Q4

REPORT INFORMATION
  Report Type: Report from Study
  Country: FR (occurrence: FR)
  Receive Date: 20120912
  Receipt Date: 20121025
  Transmission Date: 20130627
  Serious: Yes (Death, Hospitalization, Disabling)
  Sender: FDA-Public Use
  Company Number: PHHY2012FR059814

PATIENT
  Age: 87 Year
  Sex: Male
  Weight: 58 kg

DRUGS (7)
  1. EXELON [Suspect]
     Indication: DEMENTIA ALZHEIMER^S TYPE
     Route: 048
     Dates: end: 20120218
  2. EXELON [Suspect]
     Indication: DEMENTIA ALZHEIMER^S TYPE
     Dosage: 4.6 mg/ 24 hours
     Route: 062
     Dates: start: 20111130
  3. DIAMICRON [Concomitant]
     Indication: TYPE 2 DIABETES MELLITUS
     Dosage: 30 mg, QD
  4. FOZITEC [Concomitant]
     Indication: HYPERTENSION
     Dosage: 10 mg, QD
  5. LODOZ [Concomitant]
     Indication: CORONARY ARTERY DISEASE
     Dosage: 2.5 mg, QD
  6. TAHOR [Concomitant]
     Indication: CORONARY ARTERY DISEASE
     Dosage: 20 mg, QD
  7. MOPRAL [Concomitant]
     Indication: ABDOMINAL PAIN UPPER
     Dosage: 20 mg, QD

REACTIONS (5)
  - Pulmonary embolism [Fatal]
  - Respiratory distress [Fatal]
  - Myocardial infarction [Fatal]
  - Femoral neck fracture [Unknown]
  - Fall [Unknown]
